FAERS Safety Report 24928427 (Version 1)
Quarter: 2025Q1

REPORT INFORMATION
  Report Type: Spontaneous
  Country: US (occurrence: None)
  Receive Date: 20250204
  Receipt Date: 20250204
  Transmission Date: 20250409
  Serious: Yes (Other)
  Sender: FDA-CTU
  Company Number: None

PATIENT
  Age: 34 Year
  Sex: Female
  Weight: 78.75 kg

DRUGS (2)
  1. METRONIDAZOLE [Suspect]
     Active Substance: METRONIDAZOLE
     Indication: Bacterial vaginosis
     Dosage: OTHER QUANTITY : 14 TABLET(S);?FREQUENCY : TWICE A DAY;?
     Route: 048
     Dates: start: 20250203, end: 20250203
  2. cephlexin [Concomitant]

REACTIONS (3)
  - Back pain [None]
  - Dysarthria [None]
  - Headache [None]

NARRATIVE: CASE EVENT DATE: 20250203
